FAERS Safety Report 4667356-6 (Version None)
Quarter: 2005Q2

REPORT INFORMATION
  Report Type: 
  Country: None (occurrence: None)
  Receive Date: 20050520
  Receipt Date: 20041019
  Transmission Date: 20051028
  Serious: Yes (Other)
  Sender: FDA-Public Use
  Company Number: PHEH2004US11229

PATIENT
  Age: 73 Year
  Sex: Male

DRUGS (1)
  1. ZOMETA [Suspect]
     Indication: MULTIPLE MYELOMA
     Dosage: 4 MG, QMO
     Dates: start: 20011106, end: 20041013

REACTIONS (3)
  - ASEPTIC NECROSIS BONE [None]
  - BIOPSY MUCOSA ABNORMAL [None]
  - SWELLING [None]
